FAERS Safety Report 20222666 (Version 2)
Quarter: 2022Q1

REPORT INFORMATION
  Report Type: Spontaneous
  Country: US (occurrence: US)
  Receive Date: 20211223
  Receipt Date: 20220113
  Transmission Date: 20220423
  Serious: Yes (Life-Threatening, Hospitalization)
  Sender: FDA-Public Use
  Company Number: US-TEVA-2021-US-1989787

PATIENT
  Age: 71 Year
  Sex: Male

DRUGS (4)
  1. DEXAMETHASONE [Suspect]
     Active Substance: DEXAMETHASONE
     Indication: COVID-19
     Route: 065
  2. DEXAMETHASONE [Suspect]
     Active Substance: DEXAMETHASONE
     Indication: COVID-19 pneumonia
  3. REMDESVIR [Concomitant]
     Indication: COVID-19
     Route: 065
  4. REMDESVIR [Concomitant]
     Indication: COVID-19 pneumonia

REACTIONS (2)
  - Gastrointestinal mucormycosis [Unknown]
  - Off label use [Unknown]
